FAERS Safety Report 13349953 (Version 2)
Quarter: 2017Q2

REPORT INFORMATION
  Report Type: Spontaneous
  Country: BR (occurrence: BR)
  Receive Date: 20170320
  Receipt Date: 20170410
  Transmission Date: 20170830
  Serious: Yes (Hospitalization, Other)
  Sender: FDA-Public Use
  Company Number: BR-009507513-1703BRA008763

PATIENT
  Age: 21 Year
  Sex: Male

DRUGS (1)
  1. DECA-DURABOLIN [Suspect]
     Active Substance: NANDROLONE DECANOATE
     Dosage: 1 AMPOULE (25 MG/ML) WEEKLY
     Route: 030

REACTIONS (2)
  - Acute kidney injury [Recovering/Resolving]
  - Nephrocalcinosis [Recovering/Resolving]
